FAERS Safety Report 8893399 (Version 4)
Quarter: 2012Q4

REPORT INFORMATION
  Report Type: 
  Country: GB (occurrence: GB)
  Receive Date: 20121108
  Receipt Date: 20121204
  Transmission Date: 20130627
  Serious: Yes (Other)
  Sender: FDA-Public Use
  Company Number: PHFR2012GB004898

PATIENT
  Sex: Male
  Weight: 76.2 kg

DRUGS (3)
  1. TEGRETOL [Suspect]
     Indication: CONVULSION
     Dosage: 100 mg, BID
     Route: 048
  2. TEGRETOL [Suspect]
     Dosage: 100 mg, daily
     Route: 048
  3. TEGRETOL [Suspect]
     Dosage: 200 mg tablet halved in 100 mg
     Route: 048

REACTIONS (16)
  - Haematochezia [Recovered/Resolved]
  - Haematuria [Recovered/Resolved]
  - Insomnia [Recovered/Resolved]
  - Gait disturbance [Recovered/Resolved]
  - Nervousness [Recovered/Resolved]
  - Dyspnoea [Recovered/Resolved]
  - Confusional state [Recovered/Resolved]
  - Constipation [Recovered/Resolved]
  - Dizziness [Recovered/Resolved]
  - Restlessness [Recovered/Resolved]
  - Headache [Recovered/Resolved]
  - Fatigue [Recovered/Resolved]
  - Nausea [Recovered/Resolved]
  - Dry mouth [Recovered/Resolved]
  - Vision blurred [Recovered/Resolved]
  - Wrong technique in drug usage process [Recovered/Resolved]
